FAERS Safety Report 14367486 (Version 1)
Quarter: 2018Q1

REPORT INFORMATION
  Report Type: Spontaneous
  Country: US (occurrence: US)
  Receive Date: 20180108
  Receipt Date: 20180108
  Transmission Date: 20180509
  Serious: Yes (Disabling, Other)
  Sender: FDA-Public Use
  Company Number: None

PATIENT
  Sex: Female
  Weight: 166.5 kg

DRUGS (5)
  1. METOPROLOL ER SUCCINATE [Concomitant]
     Active Substance: METOPROLOL SUCCINATE
  2. ALPRAZOLAM. [Concomitant]
     Active Substance: ALPRAZOLAM
  3. DULOXETINE DELAYED-RELEASE CAPSULES USP [Suspect]
     Active Substance: DULOXETINE
     Indication: DEPRESSION
     Dosage: ?          QUANTITY:1 CAPSULE(S);?
     Route: 048
     Dates: start: 20160101, end: 20180104
  4. LISINOPRIL. [Concomitant]
     Active Substance: LISINOPRIL
  5. DAILY MULTI VITAMIN [Concomitant]

REACTIONS (10)
  - Depression [None]
  - Tinnitus [None]
  - Vomiting [None]
  - Tremor [None]
  - Formication [None]
  - Withdrawal syndrome [None]
  - Hyperhidrosis [None]
  - Blood pressure increased [None]
  - Agitation [None]
  - Decreased activity [None]

NARRATIVE: CASE EVENT DATE: 20180104
